FAERS Safety Report 5252158-2 (Version None)
Quarter: 2007Q1

REPORT INFORMATION
  Report Type: 
  Country: None (occurrence: None)
  Receive Date: 20070226
  Receipt Date: 20051001
  Transmission Date: 20070707
  Serious: Yes (Death)
  Sender: FDA-Public Use
  Company Number: MC200700149

PATIENT

DRUGS (1)
  1. ANGIOMAX [Suspect]

REACTIONS (3)
  - AORTIC INJURY [None]
  - IATROGENIC INJURY [None]
  - PROCEDURAL COMPLICATION [None]
